FAERS Safety Report 4688218-4 (Version None)
Quarter: 2005Q2

REPORT INFORMATION
  Report Type: 
  Country: None (occurrence: None)
  Receive Date: 20050610
  Receipt Date: 20040203
  Transmission Date: 20051028
  Serious: Yes (Hospitalization, Other)
  Sender: FDA-Public Use
  Company Number: JP-ABBOTT-04P-087-0249547-00

PATIENT
  Sex: Male
  Weight: 58.2 kg

DRUGS (11)
  1. KLARICID [Suspect]
     Indication: HELICOBACTER INFECTION
     Route: 048
     Dates: start: 20030701, end: 20030703
  2. AMOXICILLIN [Suspect]
     Indication: HELICOBACTER INFECTION
     Route: 048
     Dates: start: 20030701, end: 20030703
  3. GLICLAZIDE [Interacting]
     Indication: DIABETES MELLITUS
     Route: 048
     Dates: end: 20030703
  4. GLICLAZIDE [Suspect]
  5. TEMOCAPRIL HYDROCHLORIDE [Suspect]
     Indication: HYPERTENSION
     Route: 048
  6. BEVANTOLOL HYDROCHLORIDE [Suspect]
     Indication: HYPERTENSION
     Route: 048
  7. ISOSORBIDE DINITRATE [Concomitant]
     Indication: ANGINA PECTORIS
     Route: 048
  8. NITRENDIPINE [Concomitant]
     Indication: HYPERTENSION
     Route: 048
  9. BENZBROMARONE [Concomitant]
     Indication: HYPERURICAEMIA
     Route: 048
  10. PROPIVERINE HYDROCHLORIDE [Concomitant]
     Indication: DYSURIA
     Route: 048
  11. LANSOPRAZOLE [Concomitant]
     Indication: HELICOBACTER INFECTION
     Route: 048
     Dates: start: 20030701, end: 20030703

REACTIONS (4)
  - DRUG INTERACTION [None]
  - HYPOGLYCAEMIC COMA [None]
  - INCONTINENCE [None]
  - MALAISE [None]
